FAERS Safety Report 10779904 (Version 1)
Quarter: 2015Q1

REPORT INFORMATION
  Report Type: Spontaneous
  Country: US (occurrence: None)
  Receive Date: 20150206
  Receipt Date: 20150206
  Transmission Date: 20150721
  Serious: No
  Sender: FDA-Public Use
  Company Number: None

PATIENT
  Age: 68 Year
  Sex: Female

DRUGS (13)
  1. DIAZEPAM. [Concomitant]
     Active Substance: DIAZEPAM
  2. HUMULIN N [Concomitant]
     Active Substance: INSULIN HUMAN
  3. ZOCOR [Concomitant]
     Active Substance: SIMVASTATIN
  4. FLONASE [Concomitant]
     Active Substance: FLUTICASONE PROPIONATE
  5. GLIPIZIDE. [Concomitant]
     Active Substance: GLIPIZIDE
  6. LISINOPRIL. [Concomitant]
     Active Substance: LISINOPRIL
  7. AMPYRA [Concomitant]
     Active Substance: DALFAMPRIDINE
  8. MONDANIFIL [Concomitant]
  9. VICODIN [Concomitant]
     Active Substance: ACETAMINOPHEN\HYDROCODONE BITARTRATE
  10. BACLOFEN. [Concomitant]
     Active Substance: BACLOFEN
  11. AMPYRA [Suspect]
     Active Substance: DALFAMPRIDINE
     Indication: MULTIPLE SCLEROSIS
     Route: 048
     Dates: start: 201006
  12. IODINE [Concomitant]
     Active Substance: IODINE
  13. DITROPAN [Concomitant]
     Active Substance: OXYBUTYNIN CHLORIDE

REACTIONS (1)
  - Urinary tract infection [None]

NARRATIVE: CASE EVENT DATE: 20150105
